FAERS Safety Report 13106002 (Version 1)
Quarter: 2017Q1

REPORT INFORMATION
  Report Type: Spontaneous
  Country: US (occurrence: US)
  Receive Date: 20170111
  Receipt Date: 20170111
  Transmission Date: 20170428
  Serious: Yes (Hospitalization)
  Sender: FDA-Public Use
  Company Number: US-ASTRAZENECA-2017SE01482

PATIENT
  Age: 34 Year
  Sex: Female

DRUGS (1)
  1. BRILINTA [Suspect]
     Active Substance: TICAGRELOR
     Indication: ARTERIAL OCCLUSIVE DISEASE
     Route: 048
     Dates: start: 201611

REACTIONS (1)
  - Dyspnoea [Recovering/Resolving]
